FAERS Safety Report 6428092-9 (Version None)
Quarter: 2009Q4

REPORT INFORMATION
  Report Type: 
  Country: None (occurrence: None)
  Receive Date: 20091105
  Receipt Date: 20091026
  Transmission Date: 20100525
  Serious: Yes (Other)
  Sender: FDA-Public Use
  Company Number: US-AMGEN-US371234

PATIENT
  Age: 15 Year
  Sex: Female
  Weight: 65.8 kg

DRUGS (1)
  1. ETANERCEPT [Suspect]
     Indication: JUVENILE ARTHRITIS
     Route: 058
     Dates: start: 20081106, end: 20081204

REACTIONS (5)
  - ALOPECIA [None]
  - INSULIN RESISTANCE [None]
  - PNEUMONIA [None]
  - SWELLING FACE [None]
  - WEIGHT INCREASED [None]
